FAERS Safety Report 16554878 (Version 1)
Quarter: 2019Q3

REPORT INFORMATION
  Report Type: Spontaneous
  Country: MX (occurrence: MX)
  Receive Date: 20190710
  Receipt Date: 20190710
  Transmission Date: 20191004
  Serious: Yes (Other)
  Sender: FDA-Public Use
  Company Number: MX-SHIRE-MX201921760

PATIENT

DRUGS (1)
  1. IDURSULFASE [Suspect]
     Active Substance: IDURSULFASE
     Indication: MUCOPOLYSACCHARIDOSIS II
     Dosage: 0.5 MILLIGRAM/KILOGRAM, 1X/WEEK
     Route: 042
     Dates: start: 2008

REACTIONS (9)
  - Respiratory distress [Unknown]
  - Urticaria [Unknown]
  - Wheezing [Unknown]
  - Platelet count decreased [Unknown]
  - Haemolytic anaemia [Unknown]
  - Angioedema [Unknown]
  - Gingival bleeding [Unknown]
  - Erythema [Unknown]
  - Pyrexia [Unknown]
